FAERS Safety Report 8221746-3 (Version None)
Quarter: 2012Q1

REPORT INFORMATION
  Report Type: 
  Country: None (occurrence: None)
  Receive Date: 20120320
  Receipt Date: 20120320
  Transmission Date: 20120608
  Serious: Yes (Disabling)
  Sender: FDA-Public Use
  Company Number: None

PATIENT
  Age: 12 Year
  Sex: Male
  Weight: 31.4 kg

DRUGS (2)
  1. ONDANSETRON [Suspect]
     Indication: PROCEDURAL VOMITING
     Dates: start: 20120315, end: 20120315
  2. ONDANSETRON [Suspect]
     Indication: PROCEDURAL NAUSEA
     Dates: start: 20120315, end: 20120315

REACTIONS (4)
  - INFUSION SITE ERYTHEMA [None]
  - INFUSION SITE INFLAMMATION [None]
  - RASH [None]
  - OEDEMA PERIPHERAL [None]
